FAERS Safety Report 8214292-4 (Version None)
Quarter: 2012Q1

REPORT INFORMATION
  Report Type: 
  Country: None (occurrence: None)
  Receive Date: 20120316
  Receipt Date: 20120312
  Transmission Date: 20120608
  Serious: Yes (Death, Hospitalization)
  Sender: FDA-Public Use
  Company Number: US-GENZYME-CLOF-1002050

PATIENT
  Sex: Male
  Weight: 71 kg

DRUGS (10)
  1. CLOLAR [Suspect]
     Indication: ACUTE MYELOID LEUKAEMIA
     Dosage: 20 MG/M2, QDX5 CONSOLIDATION
     Route: 042
     Dates: start: 20120123, end: 20120127
  2. CLOLAR [Suspect]
     Dosage: CYCLE I OF INDUCTION
     Route: 065
     Dates: start: 20111004, end: 20111008
  3. VORICONAZOLE [Concomitant]
     Indication: INFECTION PROPHYLAXIS
     Dosage: 200 MG, QID
     Route: 048
     Dates: start: 20111209, end: 20120209
  4. ONDANSETRON [Concomitant]
     Indication: VOMITING
  5. CLOLAR [Suspect]
     Dosage: CYCLE II OF INDUCTION
     Route: 065
     Dates: start: 20111025, end: 20111028
  6. ONDANSETRON [Concomitant]
     Indication: NAUSEA
     Dosage: 8 MG, TID PRN
     Route: 048
     Dates: start: 20120123, end: 20120209
  7. COMPAZINE [Concomitant]
     Indication: NAUSEA
     Dosage: 10 MG, QID PRN
     Route: 048
     Dates: start: 20120131, end: 20120209
  8. OXYCODONE HCL [Concomitant]
     Indication: PAIN
     Dosage: 5 MG, Q4H PRN
     Route: 048
     Dates: start: 20111209, end: 20120209
  9. COMPAZINE [Concomitant]
     Indication: VOMITING
  10. CIPROFLOXACIN HYDROCHLORIDE [Concomitant]
     Indication: INFECTION PROPHYLAXIS
     Dosage: 500 MG, BID
     Route: 048
     Dates: start: 20120131, end: 20120209

REACTIONS (3)
  - ACUTE RESPIRATORY DISTRESS SYNDROME [None]
  - SEPSIS [None]
  - TRANSFUSION-RELATED ACUTE LUNG INJURY [None]
